FAERS Safety Report 18650873 (Version 21)
Quarter: 2023Q4

REPORT INFORMATION
  Report Type: Spontaneous
  Country: CA (occurrence: CA)
  Receive Date: 20201223
  Receipt Date: 20231103
  Transmission Date: 20240110
  Serious: Yes (Hospitalization, Other)
  Sender: FDA-Public Use
  Company Number: CA-CELLTRION INC.-2020CA032809

PATIENT

DRUGS (21)
  1. INFLECTRA [Suspect]
     Active Substance: INFLIXIMAB-DYYB
     Indication: Colitis ulcerative
     Dosage: 600 MG AT 0, 2, 6, THEN EVERY 8 WEEKS (WEEK 0)
     Route: 042
     Dates: start: 20201102, end: 20201102
  2. INFLECTRA [Suspect]
     Active Substance: INFLIXIMAB-DYYB
     Dosage: 600 MG AT 0, 2, 6, THEN EVERY 8 WEEKS (WEEK 2)
     Route: 042
     Dates: start: 20201116, end: 20201116
  3. INFLECTRA [Suspect]
     Active Substance: INFLIXIMAB-DYYB
     Dosage: 600 MG AT 0, 2, 6, THEN EVERY 8 WEEKS(Q 6 WEEK DOSE )
     Route: 042
     Dates: start: 20201215, end: 20201215
  4. INFLECTRA [Suspect]
     Active Substance: INFLIXIMAB-DYYB
     Dosage: 600 MG AT 0, 2, 6, THEN EVERY 8 WEEKS (EVERY 8 WEEK, MAINTENANCE DOSE)
     Route: 042
     Dates: start: 20210222, end: 20210222
  5. INFLECTRA [Suspect]
     Active Substance: INFLIXIMAB-DYYB
     Dosage: 600 MG, EVERY 8 WEEK (MAINTENANCE DOSE)
     Route: 042
     Dates: start: 20210510, end: 20210510
  6. INFLECTRA [Suspect]
     Active Substance: INFLIXIMAB-DYYB
     Dosage: 600 MG, EVERY 8 WEEK (MAINTENANCE DOSE)
     Route: 042
     Dates: start: 20210707, end: 20210707
  7. INFLECTRA [Suspect]
     Active Substance: INFLIXIMAB-DYYB
     Dosage: 600 MG, EVERY 8 WEEK (MAINTENANCE DOSE)
     Route: 042
     Dates: start: 20210830, end: 20210830
  8. INFLECTRA [Suspect]
     Active Substance: INFLIXIMAB-DYYB
     Dosage: 600 MG, EVERY 8 WEEK (MAINTENANCE DOSE)
     Route: 042
     Dates: start: 20211025, end: 20211025
  9. INFLECTRA [Suspect]
     Active Substance: INFLIXIMAB-DYYB
     Dosage: 600 MG, EVERY 8 WEEK (MAINTENANCE DOSE)
     Route: 042
     Dates: start: 20211220
  10. INFLECTRA [Suspect]
     Active Substance: INFLIXIMAB-DYYB
     Dosage: 600 MG, EVERY 8 WEEK (MAINTENANCE DOSE)
     Route: 042
     Dates: start: 20220606
  11. INFLECTRA [Suspect]
     Active Substance: INFLIXIMAB-DYYB
     Dosage: 600 MG, EVERY 8 WEEK (MAINTENANCE DOSE)
     Route: 042
     Dates: start: 20220606
  12. INFLECTRA [Suspect]
     Active Substance: INFLIXIMAB-DYYB
     Dosage: 600 MG, EVERY 8 WEEK (MAINTENANCE DOSE)
     Route: 042
     Dates: start: 20220805
  13. INFLECTRA [Suspect]
     Active Substance: INFLIXIMAB-DYYB
     Dosage: 600 MG, EVERY 8 WEEK (MAINTENANCE DOSE)
     Route: 042
     Dates: start: 20220926
  14. INFLECTRA [Suspect]
     Active Substance: INFLIXIMAB-DYYB
     Dosage: 600 MG, EVERY 8 WEEK (MAINTENANCE DOSE)
     Route: 042
     Dates: start: 20220926
  15. INFLECTRA [Suspect]
     Active Substance: INFLIXIMAB-DYYB
     Dosage: 600 MG, EVERY 8 WEEK (MAINTENANCE DOSE)
     Route: 042
     Dates: start: 20221121
  16. INFLECTRA [Suspect]
     Active Substance: INFLIXIMAB-DYYB
     Dosage: 600 MG, EVERY 8 WEEK (MAINTENANCE DOSE)
     Route: 042
     Dates: start: 20230117
  17. INFLECTRA [Suspect]
     Active Substance: INFLIXIMAB-DYYB
     Dosage: 600 MG, EVERY 8 WEEK (MAINTENANCE DOSE)
     Route: 042
     Dates: start: 20230316
  18. INFLECTRA [Suspect]
     Active Substance: INFLIXIMAB-DYYB
     Dosage: 600 MG, EVERY 8 WEEK (MAINTENANCE DOSE)
     Route: 042
     Dates: start: 20230508
  19. INFLECTRA [Suspect]
     Active Substance: INFLIXIMAB-DYYB
     Dosage: 600 MG, EVERY 8 WEEK 1 DAYS
     Route: 042
     Dates: start: 20230704
  20. INFLECTRA [Suspect]
     Active Substance: INFLIXIMAB-DYYB
     Dosage: 600 MG, EVERY 8 WEEK (MAINTENANCE DOSE)
     Route: 042
     Dates: start: 20230828
  21. INFLECTRA [Suspect]
     Active Substance: INFLIXIMAB-DYYB
     Dosage: 600 MG, EVERY 8 WEEK (MAINTENANCE DOSE) (600 MG, 8 WEEKS AND 2 DAYS)
     Route: 042
     Dates: start: 20231025

REACTIONS (15)
  - Sepsis [Unknown]
  - Escherichia infection [Unknown]
  - Infection [Not Recovered/Not Resolved]
  - Cystitis [Unknown]
  - Wound [Not Recovered/Not Resolved]
  - Impaired healing [Not Recovered/Not Resolved]
  - Cataract [Not Recovered/Not Resolved]
  - Blood pressure systolic increased [Unknown]
  - Heart rate decreased [Unknown]
  - Poor venous access [Not Recovered/Not Resolved]
  - Pain [Not Recovered/Not Resolved]
  - Condition aggravated [Recovered/Resolved]
  - Condition aggravated [Recovering/Resolving]
  - Off label use [Unknown]
  - Intentional product use issue [Unknown]

NARRATIVE: CASE EVENT DATE: 20201116
